FAERS Safety Report 16173219 (Version 1)
Quarter: 2019Q2

REPORT INFORMATION
  Report Type: Spontaneous
  Country: US (occurrence: US)
  Receive Date: 20190409
  Receipt Date: 20190409
  Transmission Date: 20190711
  Serious: Yes (Hospitalization, Other)
  Sender: FDA-Public Use
  Company Number: US-DRREDDYS-USA/USA/19/0109316

PATIENT
  Age: 22 Year
  Sex: Male

DRUGS (6)
  1. ALEMTUZUMAB [Suspect]
     Active Substance: ALEMTUZUMAB
     Indication: METACHROMATIC LEUKODYSTROPHY
  2. THIOTEPA. [Suspect]
     Active Substance: THIOTEPA
     Indication: METACHROMATIC LEUKODYSTROPHY
  3. HYDROXYUREA. [Suspect]
     Active Substance: HYDROXYUREA
     Indication: METACHROMATIC LEUKODYSTROPHY
  4. TACROLIMUS. [Suspect]
     Active Substance: TACROLIMUS
     Indication: IMMUNOSUPPRESSION
  5. MELPHALAN. [Suspect]
     Active Substance: MELPHALAN
     Indication: METACHROMATIC LEUKODYSTROPHY
  6. FLUDARABINE [Suspect]
     Active Substance: FLUDARABINE PHOSPHATE
     Indication: METACHROMATIC LEUKODYSTROPHY

REACTIONS (5)
  - Parainfluenzae virus infection [Recovered/Resolved]
  - Cough [Recovered/Resolved]
  - Pyrexia [Recovered/Resolved]
  - Nasal congestion [Recovered/Resolved]
  - Anaemia [Recovered/Resolved]
